FAERS Safety Report 13193298 (Version 3)
Quarter: 2017Q1

REPORT INFORMATION
  Report Type: Report from Study
  Country: JP (occurrence: JP)
  Receive Date: 20170207
  Receipt Date: 20170210
  Transmission Date: 20170428
  Serious: Yes (Hospitalization, Other)
  Sender: FDA-Public Use
  Company Number: JP-JNJFOC-20170202032

PATIENT
  Age: 72 Year
  Sex: Male

DRUGS (1)
  1. IBRUTINIB [Suspect]
     Active Substance: IBRUTINIB
     Indication: CHRONIC LYMPHOCYTIC LEUKAEMIA
     Route: 048
     Dates: start: 20160914, end: 20170202

REACTIONS (5)
  - Aspergillus test positive [Not Recovered/Not Resolved]
  - Haemorrhage [Not Recovered/Not Resolved]
  - Vision blurred [Not Recovered/Not Resolved]
  - Chronic lymphocytic leukaemia [Not Recovered/Not Resolved]
  - Puncture site haemorrhage [Not Recovered/Not Resolved]

NARRATIVE: CASE EVENT DATE: 201609
